FAERS Safety Report 23778711 (Version 1)
Quarter: 2024Q2

REPORT INFORMATION
  Report Type: Spontaneous
  Country: GR (occurrence: GR)
  Receive Date: 20240424
  Receipt Date: 20240424
  Transmission Date: 20240716
  Serious: Yes (Other)
  Sender: FDA-Public Use
  Company Number: GR-INCYTE CORPORATION-2024IN003726

PATIENT
  Age: 45 Year
  Sex: Female

DRUGS (3)
  1. OXALIPLATIN [Suspect]
     Active Substance: OXALIPLATIN
     Dosage: 85 MG/M2
     Route: 065
     Dates: start: 20231221
  2. PEMAZYRE [Suspect]
     Active Substance: PEMIGATINIB
     Indication: Cholangiocarcinoma
     Dosage: 13.5 MILLIGRAM, QD FOR 14 DAYS ON A 21 DAY CYCLE
     Route: 048
     Dates: start: 20221206, end: 20231216
  3. FLUOROURACIL [Suspect]
     Active Substance: FLUOROURACIL
     Indication: Cholangiocarcinoma
     Dosage: 2.400 MG/M2 (INF. 46HRS) FOR 14 DAYS
     Route: 065
     Dates: start: 20231221

REACTIONS (17)
  - Retinal oedema [Recovered/Resolved]
  - Retinal detachment [Recovered/Resolved]
  - Hyperthyroidism [Recovered/Resolved]
  - Neoplasm progression [Recovered/Resolved]
  - Haematotoxicity [Unknown]
  - Arthralgia [Recovered/Resolved]
  - Chalazion [Recovering/Resolving]
  - Alopecia [Recovered/Resolved]
  - Dry eye [Recovering/Resolving]
  - Rash [Recovered/Resolved]
  - Diarrhoea [Recovered/Resolved]
  - Taste disorder [Recovered/Resolved]
  - Dysgeusia [Recovered/Resolved]
  - Mental disorder [Unknown]
  - Blepharitis [Recovering/Resolving]
  - Nail disorder [Recovered/Resolved]
  - Constipation [Recovered/Resolved]

NARRATIVE: CASE EVENT DATE: 20230117
